FAERS Safety Report 5884713-0 (Version None)
Quarter: 2008Q3

REPORT INFORMATION
  Report Type: 
  Country: None (occurrence: None)
  Receive Date: 20080912
  Receipt Date: 20080903
  Transmission Date: 20090109
  Serious: Yes (Hospitalization)
  Sender: FDA-Public Use
  Company Number: 2008BI015150

PATIENT
  Age: 53 Year
  Sex: Female

DRUGS (2)
  1. AVONEX [Suspect]
     Indication: MULTIPLE SCLEROSIS
     Dosage: 30 UG, QW; IM,
     Route: 030
     Dates: start: 20080516, end: 20080603
  2. AVONEX [Suspect]
     Indication: MULTIPLE SCLEROSIS
     Dosage: 30 UG, QW; IM,
     Route: 030
     Dates: start: 20080702, end: 20080717

REACTIONS (12)
  - ANAEMIA [None]
  - DISORIENTATION [None]
  - EROSIVE OESOPHAGITIS [None]
  - FALL [None]
  - GASTROINTESTINAL HAEMORRHAGE [None]
  - HEAD INJURY [None]
  - INTERSTITIAL LUNG DISEASE [None]
  - IRON DEFICIENCY ANAEMIA [None]
  - PNEUMONIA [None]
  - PNEUMONIA STAPHYLOCOCCAL [None]
  - RIB FRACTURE [None]
  - WRIST FRACTURE [None]
